FAERS Safety Report 18131765 (Version 1)
Quarter: 2020Q3

REPORT INFORMATION
  Report Type: Report from Study
  Country: US (occurrence: US)
  Receive Date: 20200810
  Receipt Date: 20200810
  Transmission Date: 20201103
  Serious: Yes (Death, Hospitalization)
  Sender: FDA-Public Use
  Company Number: US-EXELIXIS-CABO-20030271

PATIENT
  Age: 78 Year
  Sex: Male

DRUGS (2)
  1. CABOMETYX [Suspect]
     Active Substance: CABOZANTINIB S-MALATE
     Dosage: 40 MG, QD
  2. CABOMETYX [Suspect]
     Active Substance: CABOZANTINIB S-MALATE
     Indication: RENAL CANCER
     Dosage: 60 MG, QD
     Dates: start: 20200506

REACTIONS (6)
  - Pneumonia [Unknown]
  - Diarrhoea [Recovering/Resolving]
  - Death [Fatal]
  - Decreased appetite [Unknown]
  - Taste disorder [Unknown]
  - Fatigue [Unknown]

NARRATIVE: CASE EVENT DATE: 202005
